FAERS Safety Report 4380130-3 (Version None)
Quarter: 2004Q2

REPORT INFORMATION
  Report Type: 
  Country: None (occurrence: None)
  Receive Date: 20040616
  Receipt Date: 20040607
  Transmission Date: 20050107
  Serious: Yes (Hospitalization, Other)
  Sender: FDA-Public Use
  Company Number: A-CH2004-06523

PATIENT
  Age: 75 Year
  Sex: Female
  Weight: 60 kg

DRUGS (2)
  1. TRACLEER [Suspect]
     Indication: PULMONARY HYPERTENSION
     Dosage: SEE IMAGE, ORAL
     Route: 048
     Dates: end: 20040101
  2. TRACLEER [Suspect]
     Indication: PULMONARY HYPERTENSION
     Dosage: SEE IMAGE, ORAL
     Route: 048
     Dates: start: 20021219

REACTIONS (3)
  - ASPARTATE AMINOTRANSFERASE INCREASED [None]
  - CEREBROVASCULAR ACCIDENT [None]
  - LIVER FUNCTION TEST ABNORMAL [None]
